FAERS Safety Report 6521269-3 (Version None)
Quarter: 2009Q4

REPORT INFORMATION
  Report Type: 
  Country: None (occurrence: None)
  Receive Date: 20091230
  Receipt Date: 20091222
  Transmission Date: 20100525
  Serious: Yes (Hospitalization)
  Sender: FDA-Public Use
  Company Number: US-BIOGENIDEC-2009BI036894

PATIENT
  Age: 59 Year
  Sex: Female

DRUGS (6)
  1. AVONEX [Suspect]
     Indication: MULTIPLE SCLEROSIS
     Route: 030
     Dates: start: 20030801
  2. AVONEX [Suspect]
     Route: 030
     Dates: start: 20030701, end: 20030801
  3. BACLOFEN [Concomitant]
  4. IBUPROFEN [Concomitant]
  5. BUPROPION HCL [Concomitant]
  6. TRAZODONE HCL [Concomitant]

REACTIONS (8)
  - ANXIETY [None]
  - ANXIETY DISORDER [None]
  - BLOOD CHOLESTEROL INCREASED [None]
  - LOSS OF CONTROL OF LEGS [None]
  - MULTIPLE SCLEROSIS RELAPSE [None]
  - PAIN IN EXTREMITY [None]
  - STRESS [None]
  - TRANSIENT ISCHAEMIC ATTACK [None]
